FAERS Safety Report 7906807-8 (Version None)
Quarter: 2011Q4

REPORT INFORMATION
  Report Type: 
  Country: None (occurrence: None)
  Receive Date: 20111110
  Receipt Date: 20111031
  Transmission Date: 20120403
  Serious: Yes (Other)
  Sender: FDA-Public Use
  Company Number: US-BRISTOL-MYERS SQUIBB COMPANY-16208282

PATIENT
  Age: 51 Year
  Sex: Female
  Weight: 92 kg

DRUGS (20)
  1. AVALIDE [Suspect]
  2. BYETTA [Suspect]
  3. CYANOCOBALAMIN [Concomitant]
  4. ADDERALL 5 [Suspect]
     Indication: ANXIETY
     Dosage: 1DF=15-30MG
  5. VALTREX [Suspect]
  6. CYCLOBENZAPRINE HCL [Concomitant]
     Indication: MUSCLE SPASMS
     Route: 048
  7. TEMAZEPAM [Concomitant]
  8. GLIPIZIDE [Concomitant]
  9. JANUVIA [Concomitant]
  10. LYRICA [Suspect]
     Indication: DIABETIC NEUROPATHY
     Dosage: CAPSULES INCREASED TO 150MG STOPPED 14FEB10
     Route: 048
     Dates: start: 20090901
  11. AMBIEN [Suspect]
     Indication: SLEEP DISORDER
     Dosage: TABS
     Route: 048
  12. ALPRAZOLAM [Concomitant]
  13. ACTOS [Concomitant]
  14. EFFEXOR XR [Suspect]
     Indication: MAJOR DEPRESSION
     Dosage: CAPSULES INCREASED TO 150MG
     Route: 048
  15. HUMULIN R [Suspect]
  16. GLUCOPHAGE [Suspect]
     Route: 048
  17. EFFEXOR XR [Suspect]
     Indication: ANXIETY
     Dosage: CAPSULES INCREASED TO 150MG
     Route: 048
  18. XANAX [Suspect]
     Indication: ANXIETY
     Dosage: TABS
     Route: 048
  19. AVANDIA [Suspect]
     Dosage: TABS
     Route: 048
  20. LISINOPRIL [Concomitant]
     Indication: HYPERTENSION

REACTIONS (7)
  - HYPERSENSITIVITY [None]
  - HYPOAESTHESIA [None]
  - MUSCLE SPASMS [None]
  - CONSTIPATION [None]
  - FALL [None]
  - BONE DISORDER [None]
  - MUSCULAR WEAKNESS [None]
